FAERS Safety Report 5934601-6 (Version None)
Quarter: 2008Q4

REPORT INFORMATION
  Report Type: 
  Country: None (occurrence: None)
  Receive Date: 20081029
  Receipt Date: 20081019
  Transmission Date: 20090506
  Serious: Yes (Other)
  Sender: FDA-Public Use
  Company Number: US-PFIZER INC-2008088151

PATIENT
  Sex: Female
  Weight: 86.363 kg

DRUGS (4)
  1. CHANTIX [Suspect]
     Indication: SMOKING CESSATION THERAPY
     Dates: start: 20080901, end: 20081011
  2. ARMOUR THYROID [Concomitant]
  3. WARFARIN SODIUM [Concomitant]
  4. TRICOR [Concomitant]

REACTIONS (6)
  - AGGRESSION [None]
  - DEPRESSION [None]
  - HALLUCINATION [None]
  - MEMORY IMPAIRMENT [None]
  - PSYCHOTIC DISORDER [None]
  - SUICIDAL IDEATION [None]
